FAERS Safety Report 4455518-2 (Version None)
Quarter: 2004Q3

REPORT INFORMATION
  Report Type: 
  Country: None (occurrence: None)
  Receive Date: 20040917
  Receipt Date: 20040903
  Transmission Date: 20050211
  Serious: Yes (Disabling)
  Sender: FDA-Public Use
  Company Number: 04H-083-0272486-00

PATIENT
  Sex: 0

DRUGS (5)
  1. VECURONIUM BROMIDE [Suspect]
     Indication: ANAESTHESIA
     Dosage: 1.2 MG/KG, INTRAVENOUS
     Route: 042
  2. FENTANYL [Suspect]
     Indication: ANAESTHESIA
     Dosage: 2.5 MCG/KG,
  3. PROPOFOL [Suspect]
     Indication: ANAESTHESIA
     Dosage: 3 MG/KG, INTRAVENOUS
     Route: 042
  4. OXYGEN [Concomitant]
  5. CAPTOPRIL [Concomitant]

REACTIONS (2)
  - ANAESTHETIC COMPLICATION [None]
  - DEAFNESS NEUROSENSORY [None]
